FAERS Safety Report 4551164-0 (Version None)
Quarter: 2005Q1

REPORT INFORMATION
  Report Type: 
  Country: None (occurrence: None)
  Receive Date: 20050111
  Receipt Date: 20050104
  Transmission Date: 20050727
  Serious: Yes (Other)
  Sender: FDA-Public Use
  Company Number: 211502

PATIENT
  Age: 43 Year
  Sex: Male

DRUGS (10)
  1. XOLAIR [Suspect]
     Dates: start: 20040301
  2. PREDNISONE [Concomitant]
  3. FLOVENT [Concomitant]
  4. FORADIL [Concomitant]
  5. QVAR (BECLOMETHASONE DIPROPIONATE) [Concomitant]
  6. SINGULAIR [Concomitant]
  7. THEO-24 (THEOPHYLLINE) [Concomitant]
  8. PREVACID [Concomitant]
  9. COMBIVENT (ALBUTEROL, ALBUTEROL SULFATE, IPRATROPIUM BROMIDE) [Concomitant]
  10. COZAAR [Concomitant]

REACTIONS (1)
  - ANAPHYLACTOID REACTION [None]
